FAERS Safety Report 10984932 (Version 1)
Quarter: 2015Q2

REPORT INFORMATION
  Report Type: Report from Study
  Country: AU (occurrence: AU)
  Receive Date: 20150403
  Receipt Date: 20150403
  Transmission Date: 20150821
  Serious: Yes (Hospitalization)
  Sender: FDA-Public Use
  Company Number: AU-BRISTOL-MYERS SQUIBB COMPANY-19965003

PATIENT
  Age: 90 Year
  Sex: Male
  Weight: 70 kg

DRUGS (10)
  1. NIVOLUMAB [Suspect]
     Active Substance: NIVOLUMAB
     Indication: METASTATIC MALIGNANT MELANOMA
     Dosage: 1DF: 213MG/71MG  CYCLE2 TREATMENT STARTED 31DEC13 AND INT
     Route: 042
     Dates: start: 20131218, end: 20131231
  2. LIGNOCAINE [Concomitant]
     Active Substance: LIDOCAINE HYDROCHLORIDE
     Dosage: 1DF=1%8MLS
  3. PARACETAMOL [Concomitant]
     Active Substance: ACETAMINOPHEN
  4. BIOTENE MOUTHWASH [Concomitant]
  5. PANTOPRAZOLE [Concomitant]
     Active Substance: PANTOPRAZOLE SODIUM
  6. OXYCODONE [Concomitant]
     Active Substance: OXYCODONE
  7. COLOXYL + SENNA [Concomitant]
  8. NORMAL SALINE [Concomitant]
     Active Substance: SODIUM CHLORIDE
  9. NAPROXEN. [Concomitant]
     Active Substance: NAPROXEN
  10. PANADEINE [Concomitant]
     Active Substance: ACETAMINOPHEN\CODEINE PHOSPHATE

REACTIONS (3)
  - Anaemia [Recovered/Resolved]
  - Pleural effusion [Recovered/Resolved]
  - Fatigue [Recovered/Resolved]

NARRATIVE: CASE EVENT DATE: 20131226
